FAERS Safety Report 16041986 (Version 1)
Quarter: 2019Q1

REPORT INFORMATION
  Report Type: Spontaneous
  Country: US (occurrence: US)
  Receive Date: 20190306
  Receipt Date: 20190306
  Transmission Date: 20190418
  Serious: No
  Sender: FDA-Public Use
  Company Number: US-AKORN PHARMACEUTICALS-2018AKN00810

PATIENT
  Age: 15 Year
  Sex: Male
  Weight: 75.28 kg

DRUGS (3)
  1. UNSPECIFIED FACE WASH [Concomitant]
  2. UNSPECIFIED LOTION [Concomitant]
     Active Substance: UNSPECIFIED INGREDIENT
  3. MYORISAN [Suspect]
     Active Substance: ISOTRETINOIN
     Indication: ACNE
     Dosage: 40 MG, 2X/DAY
     Route: 048
     Dates: start: 20180115, end: 20180527

REACTIONS (7)
  - Viral infection [Unknown]
  - Pyrexia [Recovering/Resolving]
  - Alanine aminotransferase increased [Unknown]
  - Aspartate aminotransferase increased [Unknown]
  - Fatigue [Unknown]
  - Thirst [Unknown]
  - Periorbital swelling [Unknown]

NARRATIVE: CASE EVENT DATE: 2018
